FAERS Safety Report 7266716 (Version 2)
Quarter: 2014Q1

REPORT INFORMATION
  Report Type: Spontaneous
  Country: US (occurrence: None)
  Receive Date: 20100119
  Receipt Date: 20140206
  Transmission Date: 20141002
  Serious: Yes (Other)
  Sender: FDA-Public Use
  Company Number: 2010S1000044

PATIENT
  Age: 61 Year
  Sex: Female
  Weight: 100.7 kg

DRUGS (8)
  1. PHOSPHO-SODA [Suspect]
     Indication: COLONOSCOPY
     Dosage: 2 IN 24 HOURS, ORAL
     Dates: start: 20080122, end: 20080122
  2. FLEET ENEMA [Suspect]
     Indication: COLONOSCOPY
     Route: 054
     Dates: start: 20080123, end: 20080123
  3. DULCOLAX [Suspect]
     Indication: COLONOSCOPY
     Dosage: 2 IN ONCE, ORAL
     Dates: start: 20080122, end: 20080122
  4. HYDROCHLOROTHIAZIDE (HYDROCHLOROTHIAZIDE) [Concomitant]
  5. LISINOPRIL (LISINOPRIL) [Concomitant]
  6. ATENOLOL (ATENOLOL) [Concomitant]
  7. NEXIUM (ESOMEPRAZOLE MAGNESIUM) [Concomitant]
  8. HYOSCYAMINE (HYOSCYAMINE) [Concomitant]

REACTIONS (10)
  - Renal failure chronic [None]
  - Malaise [None]
  - Abdominal pain [None]
  - Dehydration [None]
  - Hypovolaemia [None]
  - Tubulointerstitial nephritis [None]
  - Dysgeusia [None]
  - Nausea [None]
  - Sinusitis [None]
  - Abdominal distension [None]
